FAERS Safety Report 9109276 (Version 1)
Quarter: 2013Q1

REPORT INFORMATION
  Report Type: Spontaneous
  Country: US (occurrence: US)
  Receive Date: 20130222
  Receipt Date: 20130222
  Transmission Date: 20140127
  Serious: Yes (Hospitalization)
  Sender: FDA-Public Use
  Company Number: US-OTSUKA-US-2013-10188

PATIENT
  Age: 51 Year
  Sex: Female

DRUGS (4)
  1. SAMSCA [Suspect]
     Indication: HYPONATRAEMIA
     Dosage: UNK
     Route: 048
     Dates: start: 201212
  2. MULTIVITAMINES AND MINERALS [Concomitant]
  3. LACTULOSE [Concomitant]
  4. MONADRIN [Concomitant]

REACTIONS (2)
  - Hepatic failure [Unknown]
  - Ammonia increased [Unknown]
